FAERS Safety Report 4578251-5 (Version None)
Quarter: 2005Q1

REPORT INFORMATION
  Report Type: 
  Country: None (occurrence: None)
  Receive Date: 20050211
  Receipt Date: 20050204
  Transmission Date: 20050727
  Serious: Yes (Hospitalization)
  Sender: FDA-Public Use
  Company Number: FR-JNJFOC-20050104771

PATIENT
  Age: 85 Year
  Sex: Male

DRUGS (11)
  1. DURAGESIC [Suspect]
     Indication: DRUG USE FOR UNKNOWN INDICATION
     Route: 062
  2. ACTISKENAN [Suspect]
     Indication: DRUG USE FOR UNKNOWN INDICATION
     Route: 049
  3. POLARAMINE [Concomitant]
     Route: 049
  4. PREVISCAN [Concomitant]
     Route: 065
  5. PYOSTACINE [Concomitant]
     Route: 065
  6. DIFFU-K [Concomitant]
     Route: 065
  7. FUROSEMIDE [Concomitant]
     Route: 065
  8. VASTAREL [Concomitant]
     Route: 065
  9. OGAST [Concomitant]
     Route: 065
  10. ENANTONE [Concomitant]
     Route: 065
  11. XATRAL [Concomitant]
     Route: 065

REACTIONS (5)
  - ASTHENIA [None]
  - ATRIAL FIBRILLATION [None]
  - CONSTIPATION [None]
  - DEHYDRATION [None]
  - VERTIGO [None]
